FAERS Safety Report 18814063 (Version 3)
Quarter: 2021Q1

REPORT INFORMATION
  Report Type: Report from Study
  Country: AR (occurrence: AR)
  Receive Date: 20210201
  Receipt Date: 20210219
  Transmission Date: 20210419
  Serious: Yes (Death, Hospitalization)
  Sender: FDA-Public Use
  Company Number: AR-EMD SERONO-9215692

PATIENT
  Sex: Male

DRUGS (1)
  1. REBIF [Suspect]
     Active Substance: INTERFERON BETA-1A
     Indication: MULTIPLE SCLEROSIS
     Route: 058
     Dates: start: 20150311

REACTIONS (6)
  - Volvulus [Fatal]
  - Angiopathy [Fatal]
  - Peritonitis [Fatal]
  - Post procedural complication [Fatal]
  - Cardio-respiratory arrest [Fatal]
  - Pulmonary embolism [Fatal]
